FAERS Safety Report 5796707-4 (Version None)
Quarter: 2008Q2

REPORT INFORMATION
  Report Type: 
  Country: None (occurrence: None)
  Receive Date: 20080627
  Receipt Date: 20080619
  Transmission Date: 20081010
  Serious: Yes (Other)
  Sender: FDA-Public Use
  Company Number: 2008SP012177

PATIENT
  Age: 58 Year
  Sex: Female

DRUGS (6)
  1. PEG-INTRON [Suspect]
     Indication: HEPATITIS C
     Dosage: SC; SC
     Route: 058
     Dates: start: 20080112, end: 20080315
  2. PEG-INTRON [Suspect]
     Indication: HEPATITIS C
     Dosage: SC; SC
     Route: 058
     Dates: start: 20080523
  3. RIBAVIRIN [Suspect]
     Indication: HEPATITIS
     Dosage: PO; PO
     Route: 048
     Dates: start: 20080112, end: 20080315
  4. RIBAVIRIN [Suspect]
     Indication: HEPATITIS
     Dosage: PO; PO
     Route: 048
     Dates: start: 20080523
  5. MOTRIN [Suspect]
  6. NEXIUM [Concomitant]

REACTIONS (9)
  - CHROMATURIA [None]
  - DIABETES MELLITUS [None]
  - DYSGEUSIA [None]
  - DYSPEPSIA [None]
  - FLANK PAIN [None]
  - HEPATIC PAIN [None]
  - HYPERTENSION [None]
  - NEUROPATHY PERIPHERAL [None]
  - RENAL PAIN [None]
